FAERS Safety Report 17885610 (Version 1)
Quarter: 2020Q2

REPORT INFORMATION
  Report Type: Spontaneous
  Country: US (occurrence: US)
  Receive Date: 20200611
  Receipt Date: 20200611
  Transmission Date: 20200714
  Serious: Yes (Disabling, Other)
  Sender: FDA-Public Use
  Company Number: US-SA-2020SA146124

PATIENT

DRUGS (1)
  1. ZANTAC 75 [Suspect]
     Active Substance: RANITIDINE HYDROCHLORIDE
     Indication: DYSPEPSIA
     Dosage: UNK, QD
     Dates: start: 2000, end: 2016

REACTIONS (19)
  - Mental disorder due to a general medical condition [Unknown]
  - Infection susceptibility increased [Unknown]
  - Pain [Unknown]
  - Ill-defined disorder [Unknown]
  - Asthenia [Unknown]
  - Malaise [Unknown]
  - Bladder cancer [Unknown]
  - Physical disability [Unknown]
  - Anxiety [Unknown]
  - Disturbance in attention [Unknown]
  - Emotional distress [Unknown]
  - Stress [Unknown]
  - Fear of disease [Unknown]
  - Loss of personal independence in daily activities [Unknown]
  - General physical health deterioration [Unknown]
  - Psychiatric symptom [Unknown]
  - Depression [Unknown]
  - Sleep disorder [Unknown]
  - Discomfort [Unknown]

NARRATIVE: CASE EVENT DATE: 20161128
